FAERS Safety Report 5201393-8 (Version None)
Quarter: 2007Q1

REPORT INFORMATION
  Report Type: 
  Country: None (occurrence: None)
  Receive Date: 20070108
  Receipt Date: 20070102
  Transmission Date: 20070707
  Serious: Yes (Other)
  Sender: FDA-Public Use
  Company Number: US-PURDUE-USA_2006_0026059

PATIENT
  Age: 74 Year
  Sex: Male

DRUGS (4)
  1. OXYCONTIN [Suspect]
     Indication: PAIN
     Dosage: 30 MG, DAILY
     Dates: start: 20000101
  2. PROTONIX [Concomitant]
     Indication: DYSPEPSIA
  3. ATIVAN [Concomitant]
     Indication: SLEEP DISORDER
  4. THYROID HORMONES [Concomitant]
     Indication: THYROID DISORDER

REACTIONS (6)
  - ABDOMINAL PAIN UPPER [None]
  - INSOMNIA [None]
  - MYOCARDIAL INFARCTION [None]
  - STOMACH DISCOMFORT [None]
  - WEIGHT DECREASED [None]
  - WEIGHT GAIN POOR [None]
